FAERS Safety Report 23984354 (Version 2)
Quarter: 2024Q3

REPORT INFORMATION
  Report Type: Report from Study
  Country: CA (occurrence: CA)
  Receive Date: 20240618
  Receipt Date: 20240702
  Transmission Date: 20241016
  Serious: Yes (Other)
  Sender: REGENERON
  Company Number: CA-BAYER-2024A085609

PATIENT
  Sex: Male

DRUGS (2)
  1. EYLEA [Suspect]
     Active Substance: AFLIBERCEPT
     Indication: Retinal vein occlusion
     Dosage: UNK, Q4WK, SOLUTION FOR INJECTION, 40 MG/ML
     Dates: start: 20240131, end: 20240131
  2. EYLEA [Suspect]
     Active Substance: AFLIBERCEPT
     Dosage: UNK, Q4WK RIGHT EYE, SOLUTION FOR INJECTION
     Dates: start: 20240604

REACTIONS (2)
  - Blindness [Unknown]
  - Eye pain [Unknown]
